FAERS Safety Report 18996979 (Version 1)
Quarter: 2021Q1

REPORT INFORMATION
  Report Type: Spontaneous
  Country: US (occurrence: US)
  Receive Date: 20210311
  Receipt Date: 20210311
  Transmission Date: 20210420
  Serious: No
  Sender: FDA-Public Use
  Company Number: None

PATIENT
  Age: 72 Year
  Sex: Male
  Weight: 103.5 kg

DRUGS (9)
  1. LEVOTHYROXINE 25MCG [Concomitant]
     Active Substance: LEVOTHYROXINE
  2. TYLENOL [Concomitant]
     Active Substance: ACETAMINOPHEN
  3. ATORVASTATIN 10MG [Concomitant]
     Active Substance: ATORVASTATIN
  4. MULTIVITAMIN ADULT [Concomitant]
  5. INLYTA [Suspect]
     Active Substance: AXITINIB
     Indication: RENAL CANCER
     Route: 048
     Dates: start: 20210216
  6. AMLODIPINE [Concomitant]
     Active Substance: AMLODIPINE BESYLATE
  7. KEYTRUDA [Concomitant]
     Active Substance: PEMBROLIZUMAB
  8. HCTZ 12.5MG [Concomitant]
  9. IRBESARTAN 150MG [Concomitant]
     Active Substance: IRBESARTAN

REACTIONS (5)
  - Fatigue [None]
  - Pruritus [None]
  - Disturbance in attention [None]
  - Skin exfoliation [None]
  - Skin haemorrhage [None]

NARRATIVE: CASE EVENT DATE: 20210311
